FAERS Safety Report 18517511 (Version 3)
Quarter: 2021Q3

REPORT INFORMATION
  Report Type: Report from Study
  Country: US (occurrence: US)
  Receive Date: 20201118
  Receipt Date: 20210907
  Transmission Date: 20211014
  Serious: Yes (Other)
  Sender: FDA-Public Use
  Company Number: US-TAKEDA-US202027191

PATIENT
  Sex: Female

DRUGS (1)
  1. HUMAN IMMUNOGLOBULIN; HYALURONIDASE [Suspect]
     Active Substance: HUMAN IMMUNOGLOBULIN G\HYALURONIDASE RECOMBINANT HUMAN
     Indication: IMMUNODEFICIENCY COMMON VARIABLE
     Route: 065

REACTIONS (12)
  - Sepsis [Unknown]
  - Adverse drug reaction [Unknown]
  - Bone marrow disorder [Unknown]
  - Insurance issue [Unknown]
  - Autoimmune disorder [Unknown]
  - Ear infection [Unknown]
  - Gastroenteritis viral [Unknown]
  - Product dose omission issue [Unknown]
  - Lymphoedema [Unknown]
  - Gastrointestinal disorder [Unknown]
  - Rash [Unknown]
  - Blood pressure fluctuation [Unknown]
